FAERS Safety Report 5278211-5 (Version None)
Quarter: 2007Q1

REPORT INFORMATION
  Report Type: 
  Country: None (occurrence: None)
  Receive Date: 20070328
  Receipt Date: 20070323
  Transmission Date: 20070707
  Serious: Yes (Death, Other)
  Sender: FDA-Public Use
  Company Number: PHEH2005US05973

PATIENT
  Age: 68 Year
  Sex: Male
  Weight: 91.609 kg

DRUGS (9)
  1. ZOMETA [Suspect]
     Indication: METASTASES TO BONE
     Dosage: QMOS
     Dates: start: 20030101, end: 20050101
  2. LOTRISONE [Concomitant]
  3. MARINOL [Concomitant]
  4. CASODEX [Concomitant]
     Indication: PROSTATE CANCER
     Dates: start: 20020801, end: 20030622
  5. ZOLADEX [Concomitant]
     Dosage: 10.8 MG
     Route: 058
     Dates: start: 20020801
  6. HYDROCORTISONE [Concomitant]
     Indication: PROSTATE CANCER
     Dosage: 30MG QAM; 10MG QPM
     Dates: start: 20040414
  7. VICODIN [Concomitant]
     Indication: BACK PAIN
     Dosage: 2 UNK, QD
  8. VIOXX [Concomitant]
     Indication: BACK PAIN
     Dosage: 12.5 MG, QD
  9. LUPRON [Concomitant]
     Dates: start: 20031201

REACTIONS (42)
  - ACUTE SINUSITIS [None]
  - AGEUSIA [None]
  - ASTHENIA [None]
  - BLOOD CREATININE INCREASED [None]
  - BONE DISORDER [None]
  - CATARACT OPERATION [None]
  - DEATH [None]
  - DECREASED APPETITE [None]
  - DEHYDRATION [None]
  - DIPLOPIA [None]
  - DIVERTICULUM [None]
  - DIZZINESS [None]
  - DYSGEUSIA [None]
  - EXOSTOSIS [None]
  - GENERAL PHYSICAL HEALTH DETERIORATION [None]
  - GINGIVAL DISORDER [None]
  - HERPES ZOSTER [None]
  - HYPOACUSIS [None]
  - IMPAIRED HEALING [None]
  - MALIGNANT NEOPLASM PROGRESSION [None]
  - METASTASES TO BONE [None]
  - NOCTURIA [None]
  - ORAL PAIN [None]
  - ORTHOSTATIC HYPOTENSION [None]
  - OSTEOMYELITIS [None]
  - OSTEONECROSIS [None]
  - POLLAKIURIA [None]
  - POST PROCEDURAL DIARRHOEA [None]
  - PRIMARY SEQUESTRUM [None]
  - PRODUCTIVE COUGH [None]
  - PROSTATE EXAMINATION ABNORMAL [None]
  - PROSTATIC SPECIFIC ANTIGEN INCREASED [None]
  - PURULENCE [None]
  - RADIOTHERAPY [None]
  - RASH [None]
  - RENAL FAILURE [None]
  - STAPHYLOCOCCAL INFECTION [None]
  - TOOTH ABSCESS [None]
  - TOOTH EXTRACTION [None]
  - UPPER RESPIRATORY TRACT CONGESTION [None]
  - WEIGHT DECREASED [None]
  - WOUND DRAINAGE [None]
